FAERS Safety Report 12744444 (Version 1)
Quarter: 2016Q3

REPORT INFORMATION
  Report Type: Spontaneous
  Country: US (occurrence: US)
  Receive Date: 20160914
  Receipt Date: 20160914
  Transmission Date: 20161109
  Serious: No
  Sender: FDA-Public Use
  Company Number: US-JAZZ-2016-US-009380

PATIENT
  Age: 71 Year
  Sex: Female

DRUGS (39)
  1. XYREM [Suspect]
     Active Substance: SODIUM OXYBATE
     Dosage: 4.5 G, BID
     Route: 048
     Dates: start: 200703, end: 200710
  2. BUPROPION HCL [Concomitant]
     Active Substance: BUPROPION HYDROCHLORIDE
  3. NORCO [Concomitant]
     Active Substance: ACETAMINOPHEN\HYDROCODONE BITARTRATE
  4. BIOTIN [Concomitant]
     Active Substance: BIOTIN
  5. LISINOPRIL + HIDROCLOROTIAZIDA [Concomitant]
     Active Substance: HYDROCHLOROTHIAZIDE\LISINOPRIL
  6. XYREM [Suspect]
     Active Substance: SODIUM OXYBATE
     Indication: CATAPLEXY
     Dosage: 3 G, BID
     Route: 048
     Dates: start: 200309, end: 200311
  7. XYREM [Suspect]
     Active Substance: SODIUM OXYBATE
     Dosage: 4.5 G, BID
     Route: 048
     Dates: start: 200311, end: 2003
  8. XYREM [Suspect]
     Active Substance: SODIUM OXYBATE
     Dosage: 4.5 G, BID
     Route: 048
     Dates: start: 200406, end: 2004
  9. OSTEO BI-FLEX [Concomitant]
     Active Substance: CHONDROITIN SULFATE A\GLUCOSAMINE
  10. CYTOMEL [Concomitant]
     Active Substance: LIOTHYRONINE SODIUM
  11. COLACE [Concomitant]
     Active Substance: DOCUSATE SODIUM
  12. PREMARIN [Concomitant]
     Active Substance: ESTROGENS, CONJUGATED
  13. XYREM [Suspect]
     Active Substance: SODIUM OXYBATE
     Dosage: 3.75 G, BID
     Route: 048
     Dates: start: 200710, end: 200803
  14. LASIX [Concomitant]
     Active Substance: FUROSEMIDE
  15. VITAMIN C [Concomitant]
     Active Substance: ASCORBIC ACID
  16. SYSTANE BALANCE [Concomitant]
     Active Substance: PROPYLENE GLYCOL
  17. DICLOFENAC [Concomitant]
     Active Substance: DICLOFENAC
  18. XYREM [Suspect]
     Active Substance: SODIUM OXYBATE
     Indication: NARCOLEPSY
     Dosage: 2.25 G, BID
     Route: 048
     Dates: start: 200309, end: 200309
  19. DEXEDRINE [Concomitant]
     Active Substance: DEXTROAMPHETAMINE SULFATE
  20. POTASSIUM CHLORIDE. [Concomitant]
     Active Substance: POTASSIUM CHLORIDE
  21. KEFLEX [Concomitant]
     Active Substance: CEPHALEXIN
  22. XYREM [Suspect]
     Active Substance: SODIUM OXYBATE
     Dosage: 3 G, BID
     Route: 048
     Dates: start: 200803
  23. OXYCODONE HYDROCHLORIDE. [Concomitant]
     Active Substance: OXYCODONE HYDROCHLORIDE
  24. CYTOMEL [Concomitant]
     Active Substance: LIOTHYRONINE SODIUM
  25. ALEVE [Concomitant]
     Active Substance: NAPROXEN SODIUM
  26. CRESTOR [Concomitant]
     Active Substance: ROSUVASTATIN CALCIUM
  27. DELSYM [Concomitant]
     Active Substance: DEXTROMETHORPHAN
  28. LORATADINE. [Concomitant]
     Active Substance: LORATADINE
  29. CALCIUM + D3 [Concomitant]
     Active Substance: CALCIUM\CHOLECALCIFEROL
  30. METAMUCIL [Concomitant]
     Active Substance: PLANTAGO SEED
  31. SYNTHROID [Concomitant]
     Active Substance: LEVOTHYROXINE SODIUM
  32. ASPIRIN. [Concomitant]
     Active Substance: ASPIRIN
  33. LYRICA [Concomitant]
     Active Substance: PREGABALIN
  34. XYREM [Suspect]
     Active Substance: SODIUM OXYBATE
     Dosage: 4.5 G, BID
     Route: 048
     Dates: start: 200502, end: 2006
  35. MAGNESIUM OXIDE. [Concomitant]
     Active Substance: MAGNESIUM OXIDE
  36. VITAMIN E [Concomitant]
     Active Substance: .ALPHA.-TOCOPHEROL
  37. VIVACTIL [Concomitant]
     Active Substance: PROTRIPTYLINE HYDROCHLORIDE
  38. COLCHICINE. [Concomitant]
     Active Substance: COLCHICINE
  39. NEURONTIN [Concomitant]
     Active Substance: GABAPENTIN

REACTIONS (3)
  - Hypersensitivity [Unknown]
  - Laryngitis [Unknown]
  - Nasopharyngitis [Not Recovered/Not Resolved]

NARRATIVE: CASE EVENT DATE: 201605
